FAERS Safety Report 8487635-4 (Version None)
Quarter: 2012Q2

REPORT INFORMATION
  Report Type: 
  Country: None (occurrence: None)
  Receive Date: 20120402
  Receipt Date: 20090421
  Transmission Date: 20120825
  Serious: Yes (Hospitalization)
  Sender: FDA-Public Use
  Company Number: PHEH2009US04006

PATIENT
  Sex: Female

DRUGS (1)
  1. EXFORGE [Suspect]

REACTIONS (7)
  - HOT FLUSH [None]
  - JOINT SWELLING [None]
  - IRRITABLE BOWEL SYNDROME [None]
  - CHEST PAIN [None]
  - OEDEMA PERIPHERAL [None]
  - LIP SWELLING [None]
  - CONSTIPATION [None]
